FAERS Safety Report 22006086 (Version 2)
Quarter: 2023Q1

REPORT INFORMATION
  Report Type: Report from Study
  Country: BG (occurrence: BG)
  Receive Date: 20230217
  Receipt Date: 20230302
  Transmission Date: 20230418
  Serious: Yes (Hospitalization, Other)
  Sender: FDA-Public Use
  Company Number: BG-TAKEDA-2023TUS016494

PATIENT
  Age: 42 Year
  Sex: Male

DRUGS (1)
  1. VEDOLIZUMAB [Suspect]
     Active Substance: VEDOLIZUMAB
     Indication: Colitis ulcerative
     Dosage: 300 MILLIGRAM
     Route: 042
     Dates: start: 20230127

REACTIONS (1)
  - Colitis ulcerative [Recovered/Resolved]

NARRATIVE: CASE EVENT DATE: 20230130
